FAERS Safety Report 25995063 (Version 1)
Quarter: 2025Q4

REPORT INFORMATION
  Report Type: Report from Study
  Country: CO (occurrence: CO)
  Receive Date: 20251104
  Receipt Date: 20251104
  Transmission Date: 20260117
  Serious: Yes (Hospitalization)
  Sender: JOHNSON AND JOHNSON
  Company Number: CO-JNJFOC-20251035758

PATIENT
  Age: 72 Year
  Sex: Female
  Weight: 52 kg

DRUGS (1)
  1. SIMPONI [Suspect]
     Active Substance: GOLIMUMAB
     Indication: Rheumatoid arthritis
     Dosage: LAST ADMINISTRATION DATE: 24-SEP-2025
     Route: 058
     Dates: start: 20210917

REACTIONS (3)
  - Dizziness [Unknown]
  - Vision blurred [Unknown]
  - Influenza [Unknown]

NARRATIVE: CASE EVENT DATE: 20250901
